FAERS Safety Report 9748768 (Version 1)
Quarter: 2013Q4

REPORT INFORMATION
  Report Type: Spontaneous
  Country: US (occurrence: US)
  Receive Date: 20131212
  Receipt Date: 20131212
  Transmission Date: 20140711
  Serious: Yes (Hospitalization)
  Sender: FDA-Public Use
  Company Number: US-TEVA-450035USA

PATIENT
  Age: 60 Year
  Sex: Female
  Weight: 104.3 kg

DRUGS (27)
  1. DOXEPIN [Suspect]
     Dosage: 10 MILLIGRAM DAILY; HS
     Route: 048
  2. INCB018424 [Suspect]
     Indication: MYELOFIBROSIS
     Dosage: 30 MILLIGRAM DAILY;
     Route: 048
     Dates: start: 20130520
  3. INCB018424 [Suspect]
     Indication: ESSENTIAL THROMBOCYTHAEMIA
  4. AZACITIDINE [Suspect]
     Indication: MYELOFIBROSIS
     Dates: start: 2013
  5. AZACITIDINE [Suspect]
     Indication: ESSENTIAL THROMBOCYTHAEMIA
  6. COREG [Suspect]
     Dosage: 50 MILLIGRAM DAILY;
     Route: 048
  7. ALPHA PIOCTIC ACID [Concomitant]
  8. ALTACE [Concomitant]
  9. BENADRYL [Concomitant]
  10. LUNESTA [Concomitant]
  11. NASONEX [Concomitant]
  12. NITROGLYCERINE [Concomitant]
  13. NITROSTAT [Concomitant]
  14. NORVASC [Concomitant]
  15. OXYCODONE HCL [Concomitant]
  16. POTASSIUM [Concomitant]
  17. PREVACID [Concomitant]
  18. PROAIR HFA [Concomitant]
  19. SINGULAR [Concomitant]
  20. SPIRONOLACTONE [Concomitant]
  21. TRAMADOL HCL [Concomitant]
  22. TRIAMCINOLONE [Concomitant]
  23. TRICOR FENOFIBRATE NANOCRYSTALLIZE [Concomitant]
  24. ZOFRAN ODT [Concomitant]
  25. CALCIUM [Concomitant]
  26. ENTECAVIR [Concomitant]
  27. IMDUR [Concomitant]

REACTIONS (1)
  - Anaemia [Recovering/Resolving]
